APPROVED DRUG PRODUCT: GAVISCON
Active Ingredient: ALUMINUM HYDROXIDE; MAGNESIUM TRISILICATE
Strength: 80MG;20MG **Federal Register determination that product was not discontinued or withdrawn for safety or effectiveness reasons**
Dosage Form/Route: TABLET, CHEWABLE;ORAL
Application: N018685 | Product #001
Applicant: CHATTEM INC DBA SANOFI CONSUMER HEALTHCARE
Approved: Dec 9, 1983 | RLD: Yes | RS: No | Type: DISCN